FAERS Safety Report 23291672 (Version 1)
Quarter: 2023Q4

REPORT INFORMATION
  Report Type: Spontaneous
  Country: US (occurrence: US)
  Receive Date: 20231213
  Receipt Date: 20231213
  Transmission Date: 20240110
  Serious: No
  Sender: FDA-Public Use
  Company Number: US-ABBVIE-2301192US

PATIENT
  Age: 93 Year
  Sex: Male

DRUGS (3)
  1. BOTOX [Suspect]
     Active Substance: ONABOTULINUMTOXINA
     Indication: Benign prostatic hyperplasia
     Dosage: TIME INTERVAL: AS NECESSARY: DOSE DESC: UNK UNK, SINGLE
     Dates: start: 20221229, end: 20221229
  2. SOTALOL [Concomitant]
     Active Substance: SOTALOL
     Indication: Atrial fibrillation
     Dosage: DOSE DESC: UNK
  3. ELIQUIS [Concomitant]
     Active Substance: APIXABAN
     Indication: Atrial fibrillation
     Dosage: DOSE DESC: UNK

REACTIONS (8)
  - Bladder catheterisation [Not Recovered/Not Resolved]
  - Off label use [Unknown]
  - Adverse event [Unknown]
  - Device related infection [Recovering/Resolving]
  - Urinary tract infection [Recovering/Resolving]
  - Incorrect route of product administration [Unknown]
  - Procedural pain [Recovered/Resolved]
  - Procedural haemorrhage [Recovered/Resolved]

NARRATIVE: CASE EVENT DATE: 20221201
